FAERS Safety Report 7626875-0 (Version None)
Quarter: 2011Q3

REPORT INFORMATION
  Report Type: 
  Country: None (occurrence: None)
  Receive Date: 20110721
  Receipt Date: 20110715
  Transmission Date: 20111222
  Serious: Yes (Other)
  Sender: FDA-Public Use
  Company Number: US-SANOFI-AVENTIS-2011SA045857

PATIENT
  Age: 72 Year
  Sex: Male

DRUGS (6)
  1. PROZAC [Concomitant]
  2. ATORVASTATIN [Concomitant]
  3. MULTAQ [Suspect]
     Indication: ATRIAL FIBRILLATION
     Route: 048
  4. COUMADIN [Concomitant]
  5. DIGOXIN [Concomitant]
  6. MULTAQ [Suspect]
     Dosage: BELOW THERAPEUTIC DOSE (NOS)
     Route: 048

REACTIONS (5)
  - DRUG INEFFECTIVE [None]
  - UNDERDOSE [None]
  - POLYCYTHAEMIA VERA [None]
  - ATRIAL FIBRILLATION [None]
  - RASH PUSTULAR [None]
